FAERS Safety Report 15051938 (Version 1)
Quarter: 2018Q2

REPORT INFORMATION
  Report Type: Spontaneous
  Country: US (occurrence: US)
  Receive Date: 20180622
  Receipt Date: 20180622
  Transmission Date: 20180711
  Serious: Yes (Other)
  Sender: FDA-Public Use
  Company Number: US-AMGEN-USASP2011025859

PATIENT
  Age: 89 Year
  Sex: Female

DRUGS (2)
  1. XGEVA [Suspect]
     Active Substance: DENOSUMAB
     Indication: BREAST CANCER METASTATIC
     Dates: start: 20110406
  2. CALCITRIOL. [Concomitant]
     Active Substance: CALCITRIOL

REACTIONS (1)
  - Hypocalcaemia [Recovering/Resolving]
